FAERS Safety Report 8582069-6 (Version None)
Quarter: 2012Q3

REPORT INFORMATION
  Report Type: 
  Country: None (occurrence: None)
  Receive Date: 20120809
  Receipt Date: 20120803
  Transmission Date: 20120928
  Serious: Yes (Hospitalization, Other)
  Sender: FDA-Public Use
  Company Number: JP-PFIZER INC-2012187108

PATIENT
  Age: 93 Year
  Sex: Female

DRUGS (6)
  1. NORVASC [Concomitant]
     Dosage: UNK
     Route: 048
  2. DOXAZOSIN MESYLATE [Suspect]
     Dosage: 1 MG, ONCE DAILY
     Route: 048
     Dates: start: 20120730
  3. LASIX [Concomitant]
     Dosage: UNK
  4. LEVOFLOXACIN [Concomitant]
     Dosage: UNK
  5. CANDESARTAN CILEXETIL [Concomitant]
     Dosage: UNK
  6. ALDACTONE [Concomitant]
     Dosage: UNK
     Route: 048

REACTIONS (3)
  - DEHYDRATION [None]
  - DECREASED APPETITE [None]
  - MALAISE [None]
